FAERS Safety Report 5636737-6 (Version None)
Quarter: 2008Q1

REPORT INFORMATION
  Report Type: 
  Country: None (occurrence: None)
  Receive Date: 20080219
  Receipt Date: 20080219
  Transmission Date: 20080703
  Serious: Yes (Other)
  Sender: FDA-Public Use
  Company Number: None

PATIENT
  Sex: Female
  Weight: 98.8842 kg

DRUGS (4)
  1. LARIAM [Suspect]
     Indication: MALARIA PROPHYLAXIS
     Dosage: 250 MG ONCE WEEKLY  PO  (ONE DOSE)
     Route: 048
     Dates: start: 20080216, end: 20080217
  2. LAMICTAL [Concomitant]
  3. KLONOPIN [Concomitant]
  4. WELLBUTRIN [Concomitant]

REACTIONS (4)
  - CRYING [None]
  - DEAFNESS UNILATERAL [None]
  - SUICIDAL IDEATION [None]
  - TINNITUS [None]
